FAERS Safety Report 10892718 (Version 1)
Quarter: 2015Q1

REPORT INFORMATION
  Report Type: Spontaneous
  Country: CN (occurrence: CN)
  Receive Date: 20150306
  Receipt Date: 20150306
  Transmission Date: 20150721
  Serious: Yes (Death)
  Sender: FDA-Public Use
  Company Number: CN-PFIZER INC-2015079702

PATIENT
  Age: 45 Year
  Sex: Male

DRUGS (1)
  1. SUTENT [Suspect]
     Active Substance: SUNITINIB MALATE
     Indication: RENAL CELL CARCINOMA

REACTIONS (3)
  - Renal cell carcinoma [Unknown]
  - Cardiopulmonary failure [Fatal]
  - Disease progression [Unknown]
